FAERS Safety Report 8205239-5 (Version None)
Quarter: 2012Q1

REPORT INFORMATION
  Report Type: 
  Country: None (occurrence: None)
  Receive Date: 20120313
  Receipt Date: 20120307
  Transmission Date: 20120608
  Serious: Yes (Life-Threatening, Other)
  Sender: FDA-Public Use
  Company Number: JP-ROCHE-759583

PATIENT
  Age: 45 Year
  Sex: Male
  Weight: 78 kg

DRUGS (7)
  1. FAMOTIDINE [Concomitant]
     Route: 048
     Dates: start: 20090301, end: 20110101
  2. IRINOTECAN HCL [Concomitant]
     Dosage: DOSAGE IS UNCERTAIN
     Route: 041
     Dates: start: 20100401, end: 20100901
  3. FLUOROURACIL [Concomitant]
     Dosage: DOSAGE IS UNCERTAIN
     Route: 040
     Dates: start: 20100401, end: 20100901
  4. AVASTIN [Suspect]
     Route: 041
     Dates: start: 20100901, end: 20101201
  5. LEVOLEUCOVORIN CALCIUM [Concomitant]
     Dosage: DOSAGE IS UNCERTAIN
     Route: 041
     Dates: start: 20100401, end: 20100901
  6. XELODA [Suspect]
     Indication: RECTAL CANCER METASTATIC
     Route: 048
     Dates: start: 20100901, end: 20101201
  7. AVASTIN [Suspect]
     Indication: RECTAL CANCER METASTATIC
     Route: 041
     Dates: start: 20100401, end: 20100901

REACTIONS (6)
  - LARGE INTESTINE PERFORATION [None]
  - ABDOMINAL WALL ABSCESS [None]
  - HAEMATOTOXICITY [None]
  - INFECTIOUS PERITONITIS [None]
  - RECTAL PERFORATION [None]
  - ILEAL PERFORATION [None]
